FAERS Safety Report 6239504-8 (Version None)
Quarter: 2009Q2

REPORT INFORMATION
  Report Type: 
  Country: None (occurrence: None)
  Receive Date: 20090618
  Receipt Date: 20090618
  Transmission Date: 20091009
  Serious: No
  Sender: FDA-Public Use
  Company Number: None

PATIENT
  Age: 29 Year
  Weight: 81.6475 kg

DRUGS (1)
  1. ZICAM COLD REMEDY HOMEOPATHIC ORAL MIST MINT LOZ ORAL MIST MINT LOZ [Suspect]
     Indication: NASOPHARYNGITIS
     Dosage: EVERY FEW HOURS SEVERAL TIMES A DA PO
     Route: 048
     Dates: start: 20090101, end: 20090107

REACTIONS (4)
  - OROPHARYNGEAL PAIN [None]
  - PRODUCT QUALITY ISSUE [None]
  - THERMAL BURN [None]
  - THROAT IRRITATION [None]
